FAERS Safety Report 9191658 (Version 1)
Quarter: 2013Q1

REPORT INFORMATION
  Report Type: Spontaneous
  Country: US (occurrence: US)
  Receive Date: 20130326
  Receipt Date: 20130326
  Transmission Date: 20140127
  Serious: Yes (Death, Other)
  Sender: FDA-Public Use
  Company Number: PHHY2013US028964

PATIENT
  Age: 26 Year
  Sex: Female

DRUGS (2)
  1. PIPERACILLIN+TAZOBACTAM [Suspect]
     Indication: BACTERAEMIA
     Dosage: 4.5 G, Q8H
  2. MYCOPHENOLATE MOFETIL [Concomitant]
     Dosage: 500 MG, BID
     Route: 048

REACTIONS (2)
  - Multi-organ failure [Fatal]
  - Drug resistance [Unknown]
